FAERS Safety Report 9723382 (Version 1)
Quarter: 2013Q4

REPORT INFORMATION
  Report Type: Spontaneous
  Country: US (occurrence: US)
  Receive Date: 20131202
  Receipt Date: 20131202
  Transmission Date: 20140711
  Serious: No
  Sender: FDA-Public Use
  Company Number: US-GLAXOSMITHKLINE-A1045105A

PATIENT
  Sex: Female

DRUGS (2)
  1. FLUTICASONE PROPIONATE [Suspect]
     Indication: NASOPHARYNGITIS
     Dosage: 50MCG UNKNOWN
     Route: 045
  2. ANTIBIOTICS [Concomitant]

REACTIONS (2)
  - Skin odour abnormal [Unknown]
  - Product quality issue [Unknown]
